FAERS Safety Report 20800144 (Version 2)
Quarter: 2023Q2

REPORT INFORMATION
  Report Type: Spontaneous
  Country: US (occurrence: US)
  Receive Date: 20220509
  Receipt Date: 20230601
  Transmission Date: 20230721
  Serious: No
  Sender: FDA-Public Use
  Company Number: US-UCBSA-2022000882

PATIENT
  Sex: Female

DRUGS (1)
  1. CIMZIA [Suspect]
     Active Substance: CERTOLIZUMAB PEGOL
     Indication: Psoriatic arthropathy
     Dosage: 200 MILLIGRAM, EV 2 WEEKS(QOW)
     Route: 058
     Dates: start: 202110

REACTIONS (5)
  - Menstruation irregular [Not Recovered/Not Resolved]
  - Abdominal distension [Unknown]
  - Alopecia [Recovered/Resolved]
  - Hypertension [Recovered/Resolved]
  - Injection site reaction [Recovered/Resolved]
